FAERS Safety Report 15407244 (Version 3)
Quarter: 2020Q3

REPORT INFORMATION
  Report Type: Spontaneous
  Country: US (occurrence: US)
  Receive Date: 20180920
  Receipt Date: 20200824
  Transmission Date: 20201102
  Serious: Yes (Hospitalization, Disabling)
  Sender: FDA-Public Use
  Company Number: US-JNJFOC-20180908733

PATIENT
  Age: 60 Year
  Sex: Male

DRUGS (1)
  1. INVOKANA [Suspect]
     Active Substance: CANAGLIFLOZIN
     Indication: DIABETES MELLITUS MANAGEMENT
     Route: 048
     Dates: start: 201501

REACTIONS (6)
  - Diabetic foot [Unknown]
  - Wound [Unknown]
  - Osteomyelitis [Unknown]
  - Cellulitis [Unknown]
  - Gangrene [Unknown]
  - Limb amputation [Unknown]

NARRATIVE: CASE EVENT DATE: 201706
